FAERS Safety Report 24868077 (Version 5)
Quarter: 2025Q4

REPORT INFORMATION
  Report Type: Spontaneous
  Country: CA (occurrence: CA)
  Receive Date: 20250121
  Receipt Date: 20251210
  Transmission Date: 20260118
  Serious: Yes (Other)
  Sender: PFIZER
  Company Number: CA-PFIZER INC-PV202400074077

PATIENT
  Age: 53 Year
  Sex: Male
  Weight: 87 kg

DRUGS (30)
  1. ZIRABEV [Suspect]
     Active Substance: BEVACIZUMAB-BVZR
     Indication: Glioblastoma
     Dosage: 970 MG, EVERY 2 WEEKS (FIRST INFUSION)
     Dates: start: 20240604
  2. ZIRABEV [Suspect]
     Active Substance: BEVACIZUMAB-BVZR
     Indication: Brain neoplasm
     Dosage: 870 MG, EVERY 2 WEEKS
     Route: 042
     Dates: start: 20240604
  3. ZIRABEV [Suspect]
     Active Substance: BEVACIZUMAB-BVZR
     Dosage: 870 MG, EVERY 2 WEEKS
     Dates: start: 20240621
  4. ZIRABEV [Suspect]
     Active Substance: BEVACIZUMAB-BVZR
     Dosage: 880 MG, EVERY 2 WEEKS
     Dates: start: 20240702
  5. ZIRABEV [Suspect]
     Active Substance: BEVACIZUMAB-BVZR
     Dosage: 880 MG, EVERY 2 WEEKS
     Dates: start: 20240702
  6. ZIRABEV [Suspect]
     Active Substance: BEVACIZUMAB-BVZR
     Dosage: 880 MG, EVERY 2 WEEKS
     Dates: start: 20240723
  7. ZIRABEV [Suspect]
     Active Substance: BEVACIZUMAB-BVZR
     Dosage: 880 MG, EVERY 2 WEEKS
     Dates: start: 20240723
  8. ZIRABEV [Suspect]
     Active Substance: BEVACIZUMAB-BVZR
     Dosage: 870 MG EVERY 2 WEEKS
     Route: 042
     Dates: start: 20241011
  9. ZIRABEV [Suspect]
     Active Substance: BEVACIZUMAB-BVZR
     Dosage: 870 MG EVERY 2 WEEKS
     Route: 042
     Dates: start: 20241023
  10. ZIRABEV [Suspect]
     Active Substance: BEVACIZUMAB-BVZR
     Dosage: 870 MG EVERY 2 WEEKS
     Route: 042
     Dates: start: 20241105
  11. ZIRABEV [Suspect]
     Active Substance: BEVACIZUMAB-BVZR
     Dosage: 870 MG, EVERY 2 WEEKS
     Route: 042
     Dates: start: 20241119
  12. ZIRABEV [Suspect]
     Active Substance: BEVACIZUMAB-BVZR
     Dosage: 870 MG, EVERY 2 WEEKS
     Route: 042
     Dates: start: 20241203
  13. ZIRABEV [Suspect]
     Active Substance: BEVACIZUMAB-BVZR
     Dosage: 870 MG, EVERY 2 WEEKS
     Route: 042
     Dates: start: 20241217
  14. ZIRABEV [Suspect]
     Active Substance: BEVACIZUMAB-BVZR
     Dosage: 870 MG, EVERY 2 WEEKS
     Route: 042
     Dates: start: 20241217
  15. ZIRABEV [Suspect]
     Active Substance: BEVACIZUMAB-BVZR
     Dosage: 870 MG, EVERY 2 WEEKS
     Route: 042
     Dates: start: 20250114
  16. ZIRABEV [Suspect]
     Active Substance: BEVACIZUMAB-BVZR
     Dosage: 870 MG, EVERY 2 WEEKS
     Route: 042
     Dates: start: 20250114
  17. ZIRABEV [Suspect]
     Active Substance: BEVACIZUMAB-BVZR
     Dosage: 10MG/KG , EVERY 2 WEEKS(PRE-MEDICATION NOT REQUIRED)
     Route: 042
     Dates: start: 20250926
  18. ZIRABEV [Suspect]
     Active Substance: BEVACIZUMAB-BVZR
     Dosage: 910 MG
     Route: 042
     Dates: start: 20251120
  19. ZIRABEV [Suspect]
     Active Substance: BEVACIZUMAB-BVZR
     Dosage: 910 MG
     Route: 042
     Dates: start: 20251120
  20. ZIRABEV [Suspect]
     Active Substance: BEVACIZUMAB-BVZR
     Dosage: 887 MG, EVERY 2 WEEKS
     Route: 042
     Dates: start: 20251203
  21. ZIRABEV [Suspect]
     Active Substance: BEVACIZUMAB-BVZR
     Dosage: 887 MG, EVERY 2 WEEKS
     Route: 042
     Dates: start: 20251203
  22. DEXAMETHASONE [Concomitant]
     Active Substance: DEXAMETHASONE
     Dosage: 165 MG, DAILY
  23. TEMOZOLOMIDE [Concomitant]
     Active Substance: TEMOZOLOMIDE
     Dosage: 4 MG, DAILY
  24. ONDANSETRON [Concomitant]
     Active Substance: ONDANSETRON
     Dosage: 8 MG, DAILY
  25. PANTOPRAZOLE [Concomitant]
     Active Substance: PANTOPRAZOLE
     Dosage: 40 MG, DAILY
  26. DULOXETINE [Concomitant]
     Active Substance: DULOXETINE
     Dosage: 60 MG, DAILY
     Route: 048
  27. APIXABAN [Concomitant]
     Active Substance: APIXABAN
     Dosage: 5 MG, DAILY
     Route: 048
  28. ACETAMINOPHEN [Concomitant]
     Active Substance: ACETAMINOPHEN
     Dosage: 1000 MG, 3X/DAY
     Route: 048
  29. GABAPENTIN [Concomitant]
     Active Substance: GABAPENTIN
     Dosage: 100 MG, AT BEDTIME
     Route: 048
  30. HYDROMORPHONE [Concomitant]
     Active Substance: HYDROMORPHONE
     Indication: Pain
     Dosage: 1 MG, 1X/DAY FOR PAIN
     Route: 048

REACTIONS (15)
  - Cerebrovascular accident [Unknown]
  - Hypertension [Unknown]
  - Blood pressure increased [Not Recovered/Not Resolved]
  - COVID-19 [Unknown]
  - Weight increased [Unknown]
  - Poor venous access [Unknown]
  - Infusion site bruising [Unknown]
  - Infusion site pain [Unknown]
  - Nausea [Unknown]
  - Dizziness [Unknown]
  - Off label use [Unknown]
  - Inappropriate schedule of product administration [Unknown]
  - Speech disorder [Unknown]
  - Mental status changes [Unknown]
  - Cognitive disorder [Unknown]

NARRATIVE: CASE EVENT DATE: 20240604
